FAERS Safety Report 17375475 (Version 1)
Quarter: 2020Q1

REPORT INFORMATION
  Report Type: Spontaneous
  Country: FR (occurrence: FR)
  Receive Date: 20200206
  Receipt Date: 20200206
  Transmission Date: 20200409
  Serious: Yes (Death, Hospitalization)
  Sender: FDA-Public Use
  Company Number: FR-BAUSCH-BL-2020-002729

PATIENT
  Age: 84 Year
  Sex: Male

DRUGS (4)
  1. PREVISCAN [FLUINDIONE] [Suspect]
     Active Substance: FLUINDIONE
     Indication: PULMONARY EMBOLISM
     Route: 048
     Dates: start: 201208, end: 201208
  2. PENTOXIFYLLINE. [Suspect]
     Active Substance: PENTOXIFYLLINE
     Indication: PULMONARY EMBOLISM
     Route: 048
     Dates: start: 201208, end: 201208
  3. KARDEGIC [Suspect]
     Active Substance: ASPIRIN DL-LYSINE
     Indication: ISCHAEMIC CARDIOMYOPATHY
     Dosage: LONG-TERM THERAPY.
     Route: 048
     Dates: end: 201208
  4. CALCIPARINE [Suspect]
     Active Substance: HEPARIN CALCIUM
     Indication: PULMONARY EMBOLISM
     Route: 058
     Dates: end: 201208

REACTIONS (2)
  - Coma [Unknown]
  - Subdural haematoma [Fatal]

NARRATIVE: CASE EVENT DATE: 20120820
